FAERS Safety Report 25034124 (Version 10)
Quarter: 2025Q3

REPORT INFORMATION
  Report Type: Spontaneous
  Country: US (occurrence: US)
  Receive Date: 20250304
  Receipt Date: 20250907
  Transmission Date: 20251021
  Serious: Yes (Hospitalization, Other)
  Sender: MDD OPERATIONS
  Company Number: US-MDD US Operations-MDD202407-002725

PATIENT
  Age: 68 Year
  Sex: Female

DRUGS (16)
  1. APOKYN [Suspect]
     Active Substance: APOMORPHINE HYDROCHLORIDE
     Indication: Parkinson^s disease
     Dates: start: 20240620
  2. APOKYN [Suspect]
     Active Substance: APOMORPHINE HYDROCHLORIDE
     Indication: On and off phenomenon
     Dates: start: 20240723
  3. APOKYN [Suspect]
     Active Substance: APOMORPHINE HYDROCHLORIDE
     Indication: Dyskinesia
     Route: 058
     Dates: start: 20240617
  4. APOKYN [Suspect]
     Active Substance: APOMORPHINE HYDROCHLORIDE
     Route: 058
  5. ONAPGO [Suspect]
     Active Substance: APOMORPHINE HYDROCHLORIDE
     Indication: Parkinson^s disease
     Dosage: PER HOUR
     Dates: end: 20250823
  6. CARBIDOPA\LEVODOPA [Concomitant]
     Active Substance: CARBIDOPA\LEVODOPA
  7. VITAMIN D2 [Concomitant]
     Active Substance: ERGOCALCIFEROL
  8. VITAMIN B12 [Concomitant]
     Active Substance: CYANOCOBALAMIN
  9. ZOLOFT [Concomitant]
     Active Substance: SERTRALINE HYDROCHLORIDE
  10. LOSARTAN POTASSIUM [Concomitant]
     Active Substance: LOSARTAN POTASSIUM
  11. ZETIA [Concomitant]
     Active Substance: EZETIMIBE
  12. METFORMIN [Concomitant]
     Active Substance: METFORMIN HYDROCHLORIDE
     Indication: Gastrointestinal disorder
  13. LINZESS [Concomitant]
     Active Substance: LINACLOTIDE
  14. ATORVASTATIN CALCIUM [Concomitant]
     Active Substance: ATORVASTATIN CALCIUM
  15. CREXONT [Concomitant]
     Active Substance: CARBIDOPA\LEVODOPA
  16. CREXONT [Concomitant]
     Active Substance: CARBIDOPA\LEVODOPA

REACTIONS (21)
  - Fluid retention [Unknown]
  - Renal disorder [Unknown]
  - Gastrointestinal disorder [Unknown]
  - Herpes zoster [Unknown]
  - Osteomyelitis [Not Recovered/Not Resolved]
  - Malaise [Unknown]
  - Hypokinesia [Unknown]
  - Back injury [Not Recovered/Not Resolved]
  - Back pain [Not Recovered/Not Resolved]
  - Fall [Unknown]
  - Vomiting [Unknown]
  - Fatigue [Unknown]
  - Balance disorder [Unknown]
  - Decreased appetite [Unknown]
  - Weight decreased [Unknown]
  - Pain [Unknown]
  - Emergency care [Unknown]
  - Arthralgia [Unknown]
  - Fatigue [Unknown]
  - Arthralgia [Unknown]
  - Nausea [Recovered/Resolved]

NARRATIVE: CASE EVENT DATE: 20240723
